FAERS Safety Report 5339704-5 (Version None)
Quarter: 2007Q2

REPORT INFORMATION
  Report Type: 
  Country: None (occurrence: None)
  Receive Date: 20070525
  Receipt Date: 20070511
  Transmission Date: 20071010
  Serious: Yes (Other)
  Sender: FDA-Public Use
  Company Number: POMP-11011

PATIENT
  Age: 25 Week
  Sex: Male
  Weight: 5.4 kg

DRUGS (11)
  1. MYOZYME [Suspect]
     Indication: GLYCOGEN STORAGE DISEASE TYPE II
     Dosage: 20 MG/KG Q2WKS IV
     Route: 042
     Dates: start: 20070224
  2. PULMICORT [Concomitant]
  3. XOPENEX [Concomitant]
  4. TYLENOL [Concomitant]
  5. CHLORAL HYDRATE [Concomitant]
  6. LASIX [Concomitant]
  7. NYSTATIN [Concomitant]
  8. VITAMIN D [Concomitant]
  9. EMLA [Concomitant]
  10. EPOGEN [Concomitant]
  11. FERROUS SULFATE [Concomitant]

REACTIONS (13)
  - ALANINE AMINOTRANSFERASE INCREASED [None]
  - ASPARTATE AMINOTRANSFERASE INCREASED [None]
  - CATHETER RELATED INFECTION [None]
  - ENTEROCOCCAL INFECTION [None]
  - HAEMATOCRIT DECREASED [None]
  - HAEMOGLOBIN DECREASED [None]
  - HEPARIN-INDUCED THROMBOCYTOPENIA [None]
  - HUMERUS FRACTURE [None]
  - OSTEOPENIA [None]
  - RESPIRATORY FAILURE [None]
  - STAPHYLOCOCCAL BACTERAEMIA [None]
  - THROMBOCYTOPENIA [None]
  - WEIGHT GAIN POOR [None]
